FAERS Safety Report 6091090-1 (Version None)
Quarter: 2009Q1

REPORT INFORMATION
  Report Type: 
  Country: None (occurrence: None)
  Receive Date: 20090220
  Receipt Date: 20090205
  Transmission Date: 20090719
  Serious: Yes (Hospitalization)
  Sender: FDA-Public Use
  Company Number: 20080318 /

PATIENT
  Age: 76 Year
  Sex: Male

DRUGS (7)
  1. VENOFER [Suspect]
     Indication: IRON DEFICIENCY ANAEMIA
     Dosage: 200MG, 4 INFUSIONS   INTRAVENOUS DRIP
     Route: 041
     Dates: start: 20081022, end: 20081025
  2. PERINDOPRIL ERBUMINE [Suspect]
  3. CARLOC (CARVEDILOL),12.5 MG [Suspect]
  4. ALLERGEX (CHLORPHENIRAMINE MALEATE 4 MG) [Concomitant]
  5. SINUCON (PHENYLTOLOXAMINE CITRATE, CHLORPHENIRAMINE MALEATE, PHENYLEPH [Concomitant]
  6. ASPIRIN [Concomitant]
  7. ALLERGEX [Concomitant]

REACTIONS (4)
  - INFUSION SITE EXTRAVASATION [None]
  - INFUSION SITE PAIN [None]
  - INFUSION SITE REACTION [None]
  - THROMBOPHLEBITIS [None]
